FAERS Safety Report 19180301 (Version 1)
Quarter: 2021Q2

REPORT INFORMATION
  Report Type: Spontaneous
  Country: US (occurrence: US)
  Receive Date: 20210426
  Receipt Date: 20210426
  Transmission Date: 20210717
  Serious: No
  Sender: FDA-Public Use
  Company Number: US-PFIZER INC-2021359637

PATIENT
  Age: 52 Year
  Sex: Female
  Weight: 65.76 kg

DRUGS (1)
  1. IBRANCE [Suspect]
     Active Substance: PALBOCICLIB
     Indication: BREAST CANCER FEMALE
     Dosage: 125 MG, 1 DAILY FOR 21 DAYS
     Route: 048
     Dates: start: 20210225

REACTIONS (6)
  - Paraesthesia [Unknown]
  - Osteoporosis [Unknown]
  - Abdominal distension [Unknown]
  - Hypoaesthesia [Unknown]
  - Condition aggravated [Unknown]
  - Flatulence [Unknown]

NARRATIVE: CASE EVENT DATE: 2021
